FAERS Safety Report 11474004 (Version 1)
Quarter: 2015Q3

REPORT INFORMATION
  Report Type: Spontaneous
  Country: US (occurrence: None)
  Receive Date: 20150908
  Receipt Date: 20150908
  Transmission Date: 20151125
  Serious: No
  Sender: FDA-Public Use
  Company Number: None

PATIENT
  Age: 62 Year
  Sex: Female
  Weight: 72.58 kg

DRUGS (1)
  1. ZYCLARA [Suspect]
     Active Substance: IMIQUIMOD
     Indication: ACTINIC KERATOSIS
     Dosage: 1 PACKET/DAY
     Route: 061
     Dates: start: 20150609, end: 20150615

REACTIONS (3)
  - Cheilitis [None]
  - Oral pain [None]
  - Lip swelling [None]

NARRATIVE: CASE EVENT DATE: 20150616
